FAERS Safety Report 5695430-4 (Version None)
Quarter: 2008Q2

REPORT INFORMATION
  Report Type: 
  Country: None (occurrence: None)
  Receive Date: 20080403
  Receipt Date: 20080320
  Transmission Date: 20081010
  Serious: Yes (Other)
  Sender: FDA-Public Use
  Company Number: 430001L08USA

PATIENT
  Age: 58 Year
  Sex: Female

DRUGS (3)
  1. MITOXANTRONE HCL [Suspect]
  2. CYTARABINE [Suspect]
  3. ETOPOSIDE [Suspect]

REACTIONS (3)
  - FEBRILE NEUTROPENIA [None]
  - INFUSION SITE PRURITUS [None]
  - RASH ERYTHEMATOUS [None]
